FAERS Safety Report 9346375 (Version 1)
Quarter: 2013Q2

REPORT INFORMATION
  Report Type: Spontaneous
  Country: GB (occurrence: GB)
  Receive Date: 20130613
  Receipt Date: 20130613
  Transmission Date: 20140414
  Serious: Yes (Other)
  Sender: FDA-Public Use
  Company Number: GB-PFIZER INC-2013176105

PATIENT
  Age: 23 Year
  Sex: Female
  Weight: 63 kg

DRUGS (4)
  1. CHAMPIX [Suspect]
     Indication: SMOKING CESSATION THERAPY
     Dosage: 0.5 MG, UNK
     Route: 048
     Dates: start: 20130518, end: 201305
  2. CHAMPIX [Suspect]
     Dosage: 1 MG, UNK
     Route: 048
     Dates: start: 201305, end: 20130529
  3. BETNOVATE [Concomitant]
     Dosage: UNK
  4. DAKTACORT [Concomitant]
     Dosage: UNK

REACTIONS (3)
  - Blister [Unknown]
  - Rash pruritic [Unknown]
  - Pain [Unknown]
